FAERS Safety Report 19589468 (Version 3)
Quarter: 2022Q4

REPORT INFORMATION
  Report Type: Spontaneous
  Country: CA (occurrence: CA)
  Receive Date: 20210721
  Receipt Date: 20221219
  Transmission Date: 20230112
  Serious: Yes (Other)
  Sender: FDA-Public Use
  Company Number: CA-SAMSUNG BIOEPIS-SB-2020-13460

PATIENT
  Age: 27 Year
  Sex: Male
  Weight: 110 kg

DRUGS (2)
  1. INFLIXIMAB [Suspect]
     Active Substance: INFLIXIMAB
     Indication: Rheumatoid arthritis
     Route: 065
  2. DESOXIMETASONE [Concomitant]
     Active Substance: DESOXIMETASONE
     Indication: Product used for unknown indication
     Dosage: UNKNOWN
     Route: 065

REACTIONS (16)
  - Arthralgia [Not Recovered/Not Resolved]
  - Blood pressure increased [Not Recovered/Not Resolved]
  - Colitis [Not Recovered/Not Resolved]
  - Condition aggravated [Not Recovered/Not Resolved]
  - Diarrhoea [Not Recovered/Not Resolved]
  - Fatigue [Not Recovered/Not Resolved]
  - Infusion site coldness [Not Recovered/Not Resolved]
  - Nasopharyngitis [Not Recovered/Not Resolved]
  - Tonsillitis bacterial [Not Recovered/Not Resolved]
  - Frequent bowel movements [Not Recovered/Not Resolved]
  - Therapeutic response shortened [Not Recovered/Not Resolved]
  - Drug ineffective [Not Recovered/Not Resolved]
  - Inappropriate schedule of product administration [Not Recovered/Not Resolved]
  - Off label use [Not Recovered/Not Resolved]
  - Intentional product use issue [Not Recovered/Not Resolved]
  - Product use issue [Not Recovered/Not Resolved]
